FAERS Safety Report 4742094-X (Version None)
Quarter: 2005Q3

REPORT INFORMATION
  Report Type: 
  Country: None (occurrence: None)
  Receive Date: 20050810
  Receipt Date: 20050726
  Transmission Date: 20060218
  Serious: Yes (Other)
  Sender: FDA-Public Use
  Company Number: 2005S1003110

PATIENT
  Age: 49 Year
  Sex: Female
  Weight: 90.7194 kg

DRUGS (8)
  1. FENTANYL [Suspect]
     Indication: NEURALGIA
     Dosage: 50 MCG/HR; Q3D; TDER
     Route: 062
     Dates: start: 20050301, end: 20050503
  2. ATENOLOL [Concomitant]
  3. SERTRALINE HCL [Concomitant]
  4. NORTRIPTYLINE HCL [Concomitant]
  5. ESTROGENS CONJUGATED [Concomitant]
  6. HYOSCYAMINE SULFATE [Concomitant]
  7. PHENOBARBITAL/ERGOTAMINE TARTRATE/BELLADONNA [Concomitant]
  8. ALKALOIDS [Concomitant]

REACTIONS (8)
  - BALANCE DISORDER [None]
  - DISTURBANCE IN ATTENTION [None]
  - EMOTIONAL DISORDER [None]
  - FEELING HOT [None]
  - PAIN [None]
  - PHARMACEUTICAL PRODUCT COMPLAINT [None]
  - TREMOR [None]
  - VISION BLURRED [None]
